FAERS Safety Report 4751733-9 (Version None)
Quarter: 2005Q3

REPORT INFORMATION
  Report Type: 
  Country: None (occurrence: None)
  Receive Date: 20050822
  Receipt Date: 20050822
  Transmission Date: 20060218
  Serious: Yes (Hospitalization, Disabling, Other)
  Sender: FDA-Public Use
  Company Number: None

PATIENT
  Sex: Female

DRUGS (6)
  1. CLOZAPINE [Suspect]
     Indication: SCHIZOPHRENIA
     Dosage: 300 MG   QAM   PO;  400 MG  QHS   PO
     Route: 048
  2. CLOZAPINE [Suspect]
     Indication: SCHIZOPHRENIA
     Dosage: 300 MG   QAM   PO;  400 MG  QHS   PO
     Route: 048
  3. VITAMIN E [Concomitant]
  4. PROTONIX [Concomitant]
  5. DEPO-PROVERA [Concomitant]
  6. STELAZINE [Concomitant]

REACTIONS (5)
  - BLOOD PRESSURE SYSTOLIC INCREASED [None]
  - CARDIOMYOPATHY [None]
  - CEREBRAL INFARCTION [None]
  - HEART RATE INCREASED [None]
  - RESPIRATORY RATE INCREASED [None]
